FAERS Safety Report 8099073-7 (Version None)
Quarter: 2012Q1

REPORT INFORMATION
  Report Type: 
  Country: None (occurrence: None)
  Receive Date: 20120129
  Receipt Date: 20111025
  Transmission Date: 20120608
  Serious: No
  Sender: FDA-Public Use
  Company Number: US-ABBOTT-11P-163-0868072-00

PATIENT
  Age: 46 Year
  Sex: Female

DRUGS (14)
  1. TOPAMAX [Concomitant]
     Indication: MIGRAINE
  2. NIZATIDINE [Concomitant]
     Indication: PROPHYLAXIS AGAINST GASTROINTESTINAL ULCER
  3. FLEXERIL [Concomitant]
     Indication: MUSCLE SPASMS
  4. TAZORAC [Concomitant]
     Indication: PSORIASIS
  5. OLUX E [Concomitant]
     Indication: PSORIASIS
  6. HUMIRA [Suspect]
     Indication: PSORIASIS
     Dates: start: 20110805
  7. VALTREX [Concomitant]
     Indication: HERPES ZOSTER
  8. DOXEPIN [Concomitant]
     Indication: ANXIETY
  9. MAXALT [Concomitant]
     Indication: MIGRAINE
     Dosage: ONCE DAILY
  10. KLONOPIN [Concomitant]
     Indication: ANXIETY
     Dosage: 2 IN 1 DAY
  11. AMBIEN [Concomitant]
     Indication: PRODUCT USED FOR UNKNOWN INDICATION
     Dosage: AT BEDTIME
  12. ARTHROTEC [Concomitant]
     Indication: BACK PAIN
     Dosage: EC
  13. STRATTERA [Concomitant]
     Indication: ATTENTION DEFICIT/HYPERACTIVITY DISORDER
  14. VITAMIN D [Concomitant]
     Indication: PRODUCT USED FOR UNKNOWN INDICATION
     Dosage: PLUS 1.25 MG 3 TIMES A WEEK

REACTIONS (4)
  - STRESS [None]
  - LIGAMENT SPRAIN [None]
  - ACNE [None]
  - PSORIASIS [None]
